FAERS Safety Report 6554024-9 (Version None)
Quarter: 2010Q1

REPORT INFORMATION
  Report Type: 
  Country: None (occurrence: None)
  Receive Date: 20100125
  Receipt Date: 20100106
  Transmission Date: 20100710
  Serious: Yes (Hospitalization)
  Sender: FDA-Public Use
  Company Number: 2010AC000041

PATIENT
  Sex: Female

DRUGS (34)
  1. DIGOXIN [Suspect]
     Dosage: 250 MCG; QD; PO
     Route: 048
     Dates: start: 20070409, end: 20070701
  2. DIGOXIN [Suspect]
     Dosage: 0.125 MG; QD; PO
     Route: 048
     Dates: start: 20070723, end: 20080205
  3. DIGOXIN [Suspect]
     Dosage: 250 MCG; QD; PO
     Route: 048
     Dates: start: 20080314
  4. COMBIVENT [Concomitant]
  5. DENAVIR [Concomitant]
  6. AVELOX [Concomitant]
  7. PROMETHAZINE [Concomitant]
  8. OMEPRAZOLE [Concomitant]
  9. SPIRONOLACTONE [Concomitant]
  10. TOPROL-XL [Concomitant]
  11. ALTACE [Concomitant]
  12. SUCRALFATE [Concomitant]
  13. ERGOTAMINE-CAFFEINE [Concomitant]
  14. DOXEPIN HCL [Concomitant]
  15. METOCLOPRAMIDE [Concomitant]
  16. DIAZEPAM [Concomitant]
  17. AMOXICILLIN [Concomitant]
  18. ADVAIR DISKUS 100/50 [Concomitant]
  19. METRONIDAZOLE [Concomitant]
  20. TETRACYCLINE [Concomitant]
  21. FLOVENT [Concomitant]
  22. NYSTATIN [Concomitant]
  23. AZITHROMYCIN [Concomitant]
  24. OXYCODONE HCL [Concomitant]
  25. NEXIUM [Concomitant]
  26. CHANTIX [Concomitant]
  27. LEVAQUIN [Concomitant]
  28. BONIVA [Concomitant]
  29. CARTIA XT [Concomitant]
  30. ASTELIN [Concomitant]
  31. COZAAR [Concomitant]
  32. CARVEDILOL [Concomitant]
  33. PENICILLIN VK [Concomitant]
  34. GUAIFENESIN [Concomitant]

REACTIONS (3)
  - ECONOMIC PROBLEM [None]
  - EMOTIONAL DISORDER [None]
  - PAIN [None]
